FAERS Safety Report 7481927-3 (Version None)
Quarter: 2011Q2

REPORT INFORMATION
  Report Type: 
  Country: None (occurrence: None)
  Receive Date: 20110516
  Receipt Date: 20110330
  Transmission Date: 20111010
  Serious: Yes (Hospitalization, Other)
  Sender: FDA-Public Use
  Company Number: PHHY2011US11633

PATIENT
  Sex: Female
  Weight: 59.5 kg

DRUGS (19)
  1. CITRACAL + D [Concomitant]
  2. TOPROL-XL [Concomitant]
     Dosage: 50 MG, BID
  3. ZYRTEC [Concomitant]
     Dosage: 10 MG, UNK
     Route: 048
  4. VITAMIN B [Concomitant]
     Dosage: 50 MG, QD
  5. PLAQUENIL [Concomitant]
     Route: 048
  6. ALPRAZOLAM [Concomitant]
     Dosage: 0.25 MG, TID
     Route: 048
  7. GLEEVEC [Suspect]
     Dosage: 400 MG, BID
     Route: 048
     Dates: start: 20070708
  8. ARTHROTEC [Concomitant]
     Route: 048
  9. FOLIC ACID [Concomitant]
     Dosage: 1 MG, QD
  10. TRAMADOL HYDROCHLORIDE [Concomitant]
     Route: 048
  11. GLEEVEC [Suspect]
     Indication: GASTRIC CANCER
     Dosage: 400 MG, DAILY
     Route: 048
     Dates: start: 20060601, end: 20110127
  12. HYDROCODONE BITARTRATE [Concomitant]
     Route: 048
  13. ACIPHEX [Concomitant]
     Dosage: 20 MG, DAILY
     Route: 048
  14. LIDODERM [Concomitant]
     Route: 061
  15. POTASSIUM CHLORIDE [Concomitant]
  16. REPLIVA 21/7 [Concomitant]
  17. NORVASC [Concomitant]
     Dosage: 5 MG, QD
     Route: 048
  18. CALCIUM [Concomitant]
     Dosage: 600 MG, QD
  19. CYMBALTA [Concomitant]
     Dosage: 60 MG, QD

REACTIONS (22)
  - CHRONIC MYELOMONOCYTIC LEUKAEMIA [None]
  - FATIGUE [None]
  - DIVERTICULUM [None]
  - ARTHRALGIA [None]
  - CONTUSION [None]
  - THROMBOCYTOPENIA [None]
  - OROPHARYNGEAL PAIN [None]
  - MARROW HYPERPLASIA [None]
  - METASTASES TO BONE [None]
  - ANAEMIA [None]
  - CYSTITIS [None]
  - PYREXIA [None]
  - JOINT STIFFNESS [None]
  - GASTROINTESTINAL STROMAL TUMOUR [None]
  - ASTHENIA [None]
  - EAR PAIN [None]
  - MONOCYTOSIS [None]
  - NEOPLASM MALIGNANT [None]
  - HEADACHE [None]
  - STOMATITIS [None]
  - BONE MARROW FAILURE [None]
  - PYURIA [None]
